FAERS Safety Report 4422372-4 (Version None)
Quarter: 2004Q3

REPORT INFORMATION
  Report Type: 
  Country: None (occurrence: None)
  Receive Date: 20040810
  Receipt Date: 20040729
  Transmission Date: 20050211
  Serious: Yes (Life-Threatening, Hospitalization)
  Sender: FDA-Public Use
  Company Number: US-JNJFOC-20040800243

PATIENT
  Sex: Female
  Weight: 49.9 kg

DRUGS (5)
  1. INFLIXIMAB [Suspect]
     Indication: CROHN'S DISEASE
     Route: 042
  2. NARCOTIC ANALGESICS [Concomitant]
  3. TPN [Concomitant]
  4. TPN [Concomitant]
  5. TPN [Concomitant]

REACTIONS (3)
  - BACTERIAL SEPSIS [None]
  - CANDIDA SEPSIS [None]
  - CATHETER RELATED INFECTION [None]
